FAERS Safety Report 4631319-7 (Version None)
Quarter: 2005Q2

REPORT INFORMATION
  Report Type: 
  Country: None (occurrence: None)
  Receive Date: 20050406
  Receipt Date: 20050321
  Transmission Date: 20051028
  Serious: Yes (Death)
  Sender: FDA-Public Use
  Company Number: USA030331151

PATIENT
  Sex: Male

DRUGS (2)
  1. HUMULIN N [Suspect]
     Indication: DIABETES MELLITUS
  2. ILETIN [Suspect]
     Indication: DIABETES MELLITUS INSULIN-DEPENDENT

REACTIONS (5)
  - GALLBLADDER DISORDER [None]
  - HEPATIC FAILURE [None]
  - INCREASED INSULIN REQUIREMENT [None]
  - PALLOR [None]
  - STARVATION [None]
